FAERS Safety Report 16592458 (Version 3)
Quarter: 2019Q3

REPORT INFORMATION
  Report Type: Report from Study
  Country: FR (occurrence: FR)
  Receive Date: 20190718
  Receipt Date: 20190920
  Transmission Date: 20191004
  Serious: Yes (Hospitalization)
  Sender: FDA-Public Use
  Company Number: FR-EISAI MEDICAL RESEARCH-EC-2019-059218

PATIENT
  Age: 36 Year
  Sex: Male
  Weight: 65 kg

DRUGS (8)
  1. LENVATINIB [Suspect]
     Active Substance: LENVATINIB
     Indication: RENAL CELL CARCINOMA
     Route: 048
     Dates: start: 20180712, end: 20190715
  2. LOPERAMIDE [Concomitant]
     Active Substance: LOPERAMIDE
  3. EVEROLIMUS. [Suspect]
     Active Substance: EVEROLIMUS
     Indication: RENAL CELL CARCINOMA
     Route: 048
     Dates: start: 20180712
  4. SMECTA [Concomitant]
     Active Substance: MONTMORILLONITE
  5. LEVOTHYROX [Concomitant]
     Active Substance: LEVOTHYROXINE
  6. LENVATINIB [Suspect]
     Active Substance: LENVATINIB
     Route: 048
     Dates: start: 20190813
  7. GINKGO EXTRACT\HEPTAMINOL\TROXERUTIN [Concomitant]
     Active Substance: GINKGO\HEPTAMINOL\TROXERUTIN
  8. TITANOREINE [Concomitant]
     Active Substance: CARRAGEENAN\TITANIUM\ZINC

REACTIONS (1)
  - Pancreatitis acute [Recovered/Resolved]

NARRATIVE: CASE EVENT DATE: 20190712
